FAERS Safety Report 18069331 (Version 2)
Quarter: 2020Q3

REPORT INFORMATION
  Report Type: Report from Study
  Country: BR (occurrence: BR)
  Receive Date: 20200725
  Receipt Date: 20200809
  Transmission Date: 20201103
  Serious: Yes (Other)
  Sender: FDA-Public Use
  Company Number: PHHY2019BR084627

PATIENT
  Age: 62 Year
  Sex: Male

DRUGS (6)
  1. COSENTYX [Suspect]
     Active Substance: SECUKINUMAB
     Dosage: UNK UNK, QMO
     Route: 065
     Dates: start: 20180914, end: 201903
  2. COSENTYX [Suspect]
     Active Substance: SECUKINUMAB
     Dosage: UNK
     Route: 065
     Dates: start: 20191107
  3. COSENTYX [Suspect]
     Active Substance: SECUKINUMAB
     Dosage: 150 MG (TWO AMPOULES), QMO (STOP DATE? LAST MONTH)
     Route: 058
  4. COSENTYX [Suspect]
     Active Substance: SECUKINUMAB
     Indication: PSORIATIC ARTHROPATHY
     Dosage: UNK
     Route: 065
     Dates: start: 20180914
  5. COSENTYX [Suspect]
     Active Substance: SECUKINUMAB
     Dosage: UNK
     Route: 065
     Dates: start: 20191207
  6. COSENTYX [Suspect]
     Active Substance: SECUKINUMAB
     Dosage: UNK
     Route: 065
     Dates: start: 20200607

REACTIONS (17)
  - Furuncle [Not Recovered/Not Resolved]
  - Inflammation [Unknown]
  - Illness [Unknown]
  - Macule [Recovering/Resolving]
  - Inflammation of wound [Not Recovered/Not Resolved]
  - Discharge [Unknown]
  - Psoriasis [Recovering/Resolving]
  - Cough [Unknown]
  - Wound infection [Recovered/Resolved]
  - Wound [Not Recovered/Not Resolved]
  - Skin discolouration [Not Recovered/Not Resolved]
  - Impaired healing [Recovered/Resolved]
  - Wound [Recovered/Resolved]
  - Scar [Not Recovered/Not Resolved]
  - Pain in extremity [Not Recovered/Not Resolved]
  - Vomiting [Unknown]
  - Furuncle [Recovered/Resolved]

NARRATIVE: CASE EVENT DATE: 201903
